FAERS Safety Report 9675127 (Version 1)
Quarter: 2013Q4

REPORT INFORMATION
  Report Type: Spontaneous
  Country: IN (occurrence: IN)
  Receive Date: 20131107
  Receipt Date: 20131107
  Transmission Date: 20140711
  Serious: Yes (Hospitalization)
  Sender: FDA-Public Use
  Company Number: IN-ROXANE LABORATORIES, INC.-2013-RO-01790RO

PATIENT
  Age: 65 Year
  Sex: Female

DRUGS (2)
  1. DIGOXIN [Suspect]
     Indication: SUPRAVENTRICULAR TACHYCARDIA
  2. DIURETICS [Suspect]
     Indication: SUPRAVENTRICULAR TACHYCARDIA

REACTIONS (2)
  - Pulmonary hypertension [Unknown]
  - Toxicity to various agents [Recovered/Resolved]
